FAERS Safety Report 18624243 (Version 1)
Quarter: 2020Q4

REPORT INFORMATION
  Report Type: Spontaneous
  Country: US (occurrence: US)
  Receive Date: 20201216
  Receipt Date: 20201216
  Transmission Date: 20210114
  Serious: Yes (Hospitalization, Other)
  Sender: FDA-Public Use
  Company Number: US-GENERICUS, INC.-2020GNR00042

PATIENT
  Age: 36 Year
  Sex: Female

DRUGS (5)
  1. ETHAMBUTOL [Suspect]
     Active Substance: ETHAMBUTOL HYDROCHLORIDE
  2. TOBRAMYCIN. [Suspect]
     Active Substance: TOBRAMYCIN
     Indication: CYSTIC FIBROSIS
     Dosage: 1 DOSAGE UNITS, 2X/DAY (28 DAYS ON 28 DAYS OFF)
     Dates: start: 20190507
  3. ARIKAYCE [Suspect]
     Active Substance: AMIKACIN
     Indication: MYCOBACTERIUM AVIUM COMPLEX INFECTION
     Dosage: UNK
     Dates: end: 2020
  4. TRIKAFTA [Suspect]
     Active Substance: ELEXACAFTOR\IVACAFTOR\TEZACAFTOR
     Dosage: UNK
     Dates: end: 2020
  5. TRIKAFTA [Suspect]
     Active Substance: ELEXACAFTOR\IVACAFTOR\TEZACAFTOR
     Dosage: UNK
     Dates: start: 20201015

REACTIONS (7)
  - Peripheral coldness [Not Recovered/Not Resolved]
  - Neuropathy peripheral [Not Recovered/Not Resolved]
  - Hypoacusis [Not Recovered/Not Resolved]
  - Tinnitus [Not Recovered/Not Resolved]
  - Dizziness [Unknown]
  - Vascular skin disorder [Not Recovered/Not Resolved]
  - Mycobacterium avium complex infection [Recovered/Resolved]

NARRATIVE: CASE EVENT DATE: 201911
